FAERS Safety Report 24357708 (Version 1)
Quarter: 2024Q3

REPORT INFORMATION
  Report Type: Spontaneous
  Country: US (occurrence: US)
  Receive Date: 20240924
  Receipt Date: 20240924
  Transmission Date: 20241017
  Serious: Yes (Other)
  Sender: PFIZER
  Company Number: US-PFIZER INC-PV202400122594

PATIENT
  Age: 84 Year
  Sex: Female
  Weight: 58.5 kg

DRUGS (2)
  1. PREMARIN [Suspect]
     Active Substance: ESTROGENS, CONJUGATED
     Indication: Urinary tract infection
     Dosage: 3 TIMES A WEEK (TWICE A WEEK AND THREE TIMES A WEEK ALTERNATING FOR YEARS)
  2. PREMARIN [Suspect]
     Active Substance: ESTROGENS, CONJUGATED
     Dosage: 2X/WEEK (TWICE A WEEK AND THREE TIMES A WEEK ALTERNATING FOR YEARS)

REACTIONS (4)
  - Expired product administered [Unknown]
  - Off label use [Unknown]
  - Drug effective for unapproved indication [Unknown]
  - Intentional product misuse [Unknown]
